FAERS Safety Report 8614396-8 (Version None)
Quarter: 2012Q3

REPORT INFORMATION
  Report Type: 
  Country: None (occurrence: None)
  Receive Date: 20120823
  Receipt Date: 20120803
  Transmission Date: 20120928
  Serious: Yes (Other)
  Sender: FDA-Public Use
  Company Number: US-009507513-1208USA008143

PATIENT

DRUGS (4)
  1. MK-2452 [Suspect]
     Indication: OCULAR HYPERTENSION
     Dosage: 1 DF, QD
     Route: 047
     Dates: start: 20120801, end: 20120802
  2. DORZOLAMIDE HYDROCHLORIDE [Concomitant]
  3. ACETAMINOPHEN [Concomitant]
  4. STUDY DRUG (UNSPECIFIED) [Suspect]
     Indication: OCULAR HYPERTENSION
     Dosage: 1 GTT, QD
     Route: 047
     Dates: start: 20120801, end: 20120802

REACTIONS (1)
  - ANTERIOR CHAMBER FLARE [None]
